FAERS Safety Report 9173491 (Version 1)
Quarter: 2013Q1

REPORT INFORMATION
  Report Type: Spontaneous
  Country: GB (occurrence: None)
  Receive Date: 20130314
  Receipt Date: 20130314
  Transmission Date: 20140127
  Serious: Yes (Other)
  Sender: FDA-Public Use
  Company Number: 2013SUN00280

PATIENT
  Age: 12 Month
  Sex: Female

DRUGS (6)
  1. OCTREOTIDE [Suspect]
     Indication: PRODUCT USED FOR UNKNOWN INDICATION
     Route: 042
  2. CASPOFUNGIN (CASPOFUNGIN) [Concomitant]
  3. CHLORAL HYDRATE (CHLORAL HYDRATE) [Concomitant]
  4. FUROSEMIDE (FUROSEMIDE) [Concomitant]
  5. MORPHINE [Concomitant]
  6. SPIRONOLACTONE (SPIRONOLACTONE) [Concomitant]

REACTIONS (1)
  - Supraventricular tachycardia [None]
